FAERS Safety Report 20009911 (Version 1)
Quarter: 2021Q4

REPORT INFORMATION
  Report Type: Spontaneous
  Country: US (occurrence: US)
  Receive Date: 20211028
  Receipt Date: 20211028
  Transmission Date: 20220303
  Serious: No
  Sender: FDA-Public Use
  Company Number: None

PATIENT
  Age: 33 Year
  Sex: Male
  Weight: 56.25 kg

DRUGS (1)
  1. BUPRENORPHINE AND NALOXONE [Suspect]
     Active Substance: BUPRENORPHINE HYDROCHLORIDE\NALOXONE HYDROCHLORIDE
     Indication: Drug use disorder
     Dosage: DOSE AMOUNT: 8/2MG
     Route: 060
     Dates: start: 20210401, end: 20211021

REACTIONS (1)
  - Treatment failure [None]

NARRATIVE: CASE EVENT DATE: 20211021
